FAERS Safety Report 16083997 (Version 4)
Quarter: 2019Q4

REPORT INFORMATION
  Report Type: Spontaneous
  Country: US (occurrence: US)
  Receive Date: 20190318
  Receipt Date: 20191017
  Transmission Date: 20200122
  Serious: No
  Sender: FDA-Public Use
  Company Number: US-PFIZER INC-2019105089

PATIENT
  Age: 52 Year
  Sex: Female
  Weight: 39.92 kg

DRUGS (3)
  1. VFEND [Suspect]
     Active Substance: VORICONAZOLE
     Indication: PNEUMONIA
  2. VFEND [Suspect]
     Active Substance: VORICONAZOLE
     Indication: PYREXIA
  3. VFEND [Suspect]
     Active Substance: VORICONAZOLE
     Indication: FUNGAL INFECTION
     Dosage: 200 MG, 2X/DAY
     Route: 048
     Dates: start: 20190303

REACTIONS (14)
  - Vomiting [Unknown]
  - Pain [Unknown]
  - Hot flush [Unknown]
  - Cough [Unknown]
  - Sinus disorder [Unknown]
  - Taste disorder [Unknown]
  - Poor quality sleep [Unknown]
  - Musculoskeletal stiffness [Unknown]
  - Dyspepsia [Unknown]
  - Disease recurrence [Unknown]
  - Weight decreased [Unknown]
  - Chest pain [Unknown]
  - Nausea [Unknown]
  - Dyspnoea [Unknown]

NARRATIVE: CASE EVENT DATE: 20190303
